FAERS Safety Report 7674864-2 (Version None)
Quarter: 2011Q3

REPORT INFORMATION
  Report Type: 
  Country: None (occurrence: None)
  Receive Date: 20110810
  Receipt Date: 20110711
  Transmission Date: 20111222
  Serious: No
  Sender: FDA-Public Use
  Company Number: US-BAYER-2011-060416

PATIENT
  Age: 42 Year
  Sex: Male

DRUGS (3)
  1. LEVITRA [Suspect]
     Dosage: 10 MG, BID
     Dates: start: 20110710
  2. LIPITOR [Concomitant]
  3. LEVITRA [Suspect]
     Dosage: 10 MG, ONCE
     Route: 048
     Dates: start: 20110707

REACTIONS (1)
  - ERECTILE DYSFUNCTION [None]
